FAERS Safety Report 23637189 (Version 2)
Quarter: 2024Q1

REPORT INFORMATION
  Report Type: Spontaneous
  Country: US (occurrence: US)
  Receive Date: 20240315
  Receipt Date: 20240326
  Transmission Date: 20240409
  Serious: No
  Sender: FDA-Public Use
  Company Number: US-PFIZER INC-202400064941

PATIENT
  Age: 71 Year
  Sex: Female

DRUGS (1)
  1. BOSULIF [Suspect]
     Active Substance: BOSUTINIB MONOHYDRATE
     Dosage: 400 MG ONCE DAILY
     Route: 048

REACTIONS (3)
  - Rash [Unknown]
  - Skin disorder [Unknown]
  - Skin swelling [Unknown]

NARRATIVE: CASE EVENT DATE: 20240201
